FAERS Safety Report 4958411-1 (Version None)
Quarter: 2006Q1

REPORT INFORMATION
  Report Type: 
  Country: None (occurrence: None)
  Receive Date: 20060329
  Receipt Date: 20060329
  Transmission Date: 20060701
  Serious: Yes (Life-Threatening, Hospitalization)
  Sender: FDA-Public Use
  Company Number: None

PATIENT
  Sex: Female
  Weight: 41 kg

DRUGS (14)
  1. METHOTREXATE [Suspect]
     Indication: BONE SARCOMA
     Dosage: 17 GMS X1 OVER 4 HOURS  IV
     Route: 042
     Dates: start: 20060307
  2. METHOTREXATE [Suspect]
     Indication: BONE SARCOMA
     Dosage: 17 GMS X1 OVER 4 HOURS  IV
     Route: 042
     Dates: start: 20060314
  3. METHOTREXATE [Suspect]
  4. METHOTREXATE [Suspect]
     Indication: BONE SARCOMA
     Dosage: 17 GMS  X1 OVER 4 HOURS IV
     Route: 042
     Dates: start: 20060314
  5. ONDANSETRON [Concomitant]
  6. DEXRAZOXANE [Concomitant]
  7. DEXAMETHASONE [Concomitant]
  8. LORAZEPAM [Concomitant]
  9. LEUCOVORIN [Concomitant]
  10. DOXORUBICIN [Concomitant]
  11. CISPLATIN [Concomitant]
  12. MANNITOL [Concomitant]
  13. METHOTREXATE [Suspect]
  14. METHOTREXATE [Suspect]

REACTIONS (6)
  - APHASIA [None]
  - AREFLEXIA [None]
  - ASTHENIA [None]
  - HEMIPARESIS [None]
  - HYPOAESTHESIA [None]
  - PARAESTHESIA [None]
